FAERS Safety Report 12253175 (Version 8)
Quarter: 2017Q4

REPORT INFORMATION
  Report Type: Spontaneous
  Country: US (occurrence: US)
  Receive Date: 20160411
  Receipt Date: 20171019
  Transmission Date: 20180320
  Serious: Yes (Other)
  Sender: FDA-Public Use
  Company Number: US-GLAXOSMITHKLINE-US2016GSK046790

PATIENT
  Age: 60 Year
  Sex: Male

DRUGS (18)
  1. TRADJENTA [Concomitant]
     Active Substance: LINAGLIPTIN
  2. TAMSULOSIN [Concomitant]
     Active Substance: TAMSULOSIN
  3. ZONTIVITY [Concomitant]
     Active Substance: VORAPAXAR SULFATE
  4. TANZEUM [Suspect]
     Active Substance: ALBIGLUTIDE
     Dosage: 30 MG, WE
     Route: 042
  5. TANZEUM [Suspect]
     Active Substance: ALBIGLUTIDE
     Dosage: 30 MG, WE
     Route: 042
     Dates: start: 201603
  6. TANZEUM [Suspect]
     Active Substance: ALBIGLUTIDE
     Dosage: 30 MG, WE
     Route: 042
     Dates: start: 201603
  7. VASCEPA [Concomitant]
     Active Substance: ICOSAPENT ETHYL
  8. CLONIDINE. [Concomitant]
     Active Substance: CLONIDINE
  9. EZETIMIBE. [Concomitant]
     Active Substance: EZETIMIBE
  10. BROMFENAC [Concomitant]
     Active Substance: BROMFENAC SODIUM
  11. AMLODIPINE [Concomitant]
     Active Substance: AMLODIPINE BESYLATE
  12. OLMESARTAN [Concomitant]
     Active Substance: OLMESARTAN
  13. PREDNISOLONE. [Concomitant]
     Active Substance: PREDNISOLONE
  14. BYSTOLIC [Concomitant]
     Active Substance: NEBIVOLOL HYDROCHLORIDE
  15. TANZEUM [Suspect]
     Active Substance: ALBIGLUTIDE
     Indication: TYPE 2 DIABETES MELLITUS
     Dosage: 30 MG, WE
     Route: 042
     Dates: start: 201512
  16. HYDRALAZINE [Concomitant]
     Active Substance: HYDRALAZINE HYDROCHLORIDE
  17. GLIPIZIDE. [Concomitant]
     Active Substance: GLIPIZIDE
  18. FUROSEMIDE. [Concomitant]
     Active Substance: FUROSEMIDE

REACTIONS (14)
  - Myalgia [Unknown]
  - Vision blurred [Unknown]
  - Visual acuity reduced [Unknown]
  - Increased appetite [Unknown]
  - Device use error [Recovered/Resolved]
  - Pre-existing condition improved [Unknown]
  - Therapeutic response unexpected [Unknown]
  - Wrong technique in product usage process [Unknown]
  - Retinopathy [Unknown]
  - Eye haemorrhage [Recovered/Resolved]
  - Back pain [Recovered/Resolved]
  - Pain [Recovered/Resolved]
  - Constipation [Recovered/Resolved]
  - Sciatica [Recovered/Resolved]

NARRATIVE: CASE EVENT DATE: 201512
